FAERS Safety Report 5151608-X (Version None)
Quarter: 2006Q4

REPORT INFORMATION
  Report Type: 
  Country: None (occurrence: None)
  Receive Date: 20061115
  Receipt Date: 20060321
  Transmission Date: 20070319
  Serious: No
  Sender: FDA-Public Use
  Company Number: US-BRISTOL-MYERS SQUIBB COMPANY-13322268

PATIENT
  Age: 47 Year
  Sex: Male

DRUGS (6)
  1. SUSTIVA [Suspect]
     Indication: HIV INFECTION
     Dates: start: 20060316
  2. TRUVADA [Concomitant]
  3. BACTRIM DS [Concomitant]
  4. ZITHROMAX [Concomitant]
  5. FLUCONAZOLE [Concomitant]
  6. NYSTATIN MOUTHWASH [Concomitant]

REACTIONS (2)
  - DYSGEUSIA [None]
  - VOMITING [None]
